FAERS Safety Report 8175121-0 (Version None)
Quarter: 2012Q1

REPORT INFORMATION
  Report Type: 
  Country: None (occurrence: None)
  Receive Date: 20120229
  Receipt Date: 20120223
  Transmission Date: 20120608
  Serious: Yes (Other)
  Sender: FDA-Public Use
  Company Number: PHHY2012CO015333

PATIENT
  Sex: Female

DRUGS (7)
  1. AMITRIPTYLINE HCL [Concomitant]
     Dosage: UNK UKN, UNK
  2. ZOLEDRONOC ACID [Suspect]
     Indication: OSTEOPOROSIS
     Dosage: 5 MG/100 ML
     Route: 042
     Dates: start: 20110303
  3. OMEPRAZOLE [Concomitant]
     Dosage: UNK UKN, UNK
  4. CALCIBON (CALCIUM CITRATE) [Concomitant]
     Dosage: UNK UKN, UNK
  5. METOPROLOL SUCCINATE [Concomitant]
     Dosage: UNK UKN, UNK
  6. METFORMIN HCL [Concomitant]
     Dosage: UNK UKN, UNK
  7. LOVASTATIN [Concomitant]
     Dosage: UNK UKN, UNK

REACTIONS (2)
  - ACCIDENT [None]
  - FOOT FRACTURE [None]
